FAERS Safety Report 14639340 (Version 1)
Quarter: 2018Q1

REPORT INFORMATION
  Report Type: Spontaneous
  Country: FR (occurrence: FR)
  Receive Date: 20180315
  Receipt Date: 20180315
  Transmission Date: 20180509
  Serious: Yes (Other)
  Sender: FDA-Public Use
  Company Number: FR-MERCK KGAA-2043772

PATIENT
  Sex: Female

DRUGS (1)
  1. NOVOTHYROX [Suspect]
     Active Substance: LEVOTHYROXINE SODIUM
     Indication: PRODUCT USED FOR UNKNOWN INDICATION
     Dates: start: 201704

REACTIONS (23)
  - Dyspnoea [None]
  - Loss of personal independence in daily activities [None]
  - Aggression [None]
  - Decreased interest [None]
  - Memory impairment [None]
  - Abdominal pain upper [None]
  - Gastrooesophageal reflux disease [None]
  - Fatigue [None]
  - Sleep disorder [None]
  - Aphasia [None]
  - Loss of libido [None]
  - Arrhythmia [None]
  - Dizziness [None]
  - Mental fatigue [None]
  - Crying [None]
  - Headache [None]
  - Myalgia [None]
  - Diarrhoea [None]
  - Musculoskeletal stiffness [None]
  - Depression [None]
  - Alopecia [None]
  - Asthma [None]
  - Mood swings [None]
